FAERS Safety Report 7104035-X (Version None)
Quarter: 2010Q4

REPORT INFORMATION
  Report Type: 
  Country: None (occurrence: None)
  Receive Date: 20101115
  Receipt Date: 20100512
  Transmission Date: 20110411
  Serious: No
  Sender: FDA-Public Use
  Company Number: US-ALLERGAN-1006355US

PATIENT
  Sex: Male

DRUGS (17)
  1. BOTOXA? [Suspect]
     Indication: EYELID DISORDER
     Dosage: EVERY 6 MONTHS
     Route: 030
  2. RESTASISA? [Concomitant]
     Indication: DRY EYE
     Dosage: UNK
     Route: 047
     Dates: start: 20100310
  3. CRESTOR [Concomitant]
  4. ZETIA [Concomitant]
  5. LISINOPRIL [Concomitant]
  6. WARFARIN [Concomitant]
  7. FINASTERIDE [Concomitant]
  8. LEVOXYL [Concomitant]
  9. PAXIL [Concomitant]
  10. TRIAMTERENE [Concomitant]
  11. CARVEDILOL [Concomitant]
  12. RESTORIL [Concomitant]
  13. SYSTANE [Concomitant]
  14. GENTEAL [Concomitant]
  15. POTASSIUM CHLORIDE [Concomitant]
     Dosage: 10 MG, UNK
  16. FISH OIL [Concomitant]
  17. MULTI-VITAMIN [Concomitant]

REACTIONS (1)
  - BLEPHAROSPASM [None]
